FAERS Safety Report 7878516-5 (Version None)
Quarter: 2011Q4

REPORT INFORMATION
  Report Type: 
  Country: None (occurrence: None)
  Receive Date: 20111028
  Receipt Date: 20111018
  Transmission Date: 20120403
  Serious: Yes (Hospitalization)
  Sender: FDA-Public Use
  Company Number: VAL_00633_2011

PATIENT
  Sex: Male

DRUGS (5)
  1. STRATTERA [Suspect]
     Indication: ATTENTION DEFICIT/HYPERACTIVITY DISORDER
     Dosage: (DF ORAL)
     Route: 048
     Dates: end: 20110916
  2. STRATTERA [Suspect]
     Indication: ANXIETY
     Dosage: (DF ORAL)
     Route: 048
     Dates: end: 20110916
  3. CALCITRIOL [Suspect]
     Indication: HYPOPARATHYROIDISM
     Dosage: (0.5 UG BID ORAL) (0.5 UG BID ORAL)
     Route: 048
     Dates: start: 20110930
  4. CALCITRIOL [Suspect]
     Indication: HYPOPARATHYROIDISM
     Dosage: (0.5 UG BID ORAL) (0.5 UG BID ORAL)
     Route: 048
     Dates: start: 20090301, end: 20110928
  5. CONCERTA [Concomitant]

REACTIONS (11)
  - BLOOD PARATHYROID HORMONE DECREASED [None]
  - HYPERTENSION [None]
  - DECREASED APPETITE [None]
  - HEADACHE [None]
  - NAUSEA [None]
  - SLUGGISHNESS [None]
  - SOMNOLENCE [None]
  - VOMITING [None]
  - DRUG INEFFECTIVE [None]
  - PALLOR [None]
  - BLOOD CALCIUM DECREASED [None]
